FAERS Safety Report 7459301-5 (Version None)
Quarter: 2011Q2

REPORT INFORMATION
  Report Type: 
  Country: None (occurrence: None)
  Receive Date: 20110505
  Receipt Date: 20110502
  Transmission Date: 20111010
  Serious: No
  Sender: FDA-Public Use
  Company Number: US-PFIZER INC-2011057664

PATIENT
  Sex: Female
  Weight: 86.168 kg

DRUGS (3)
  1. LIPITOR [Suspect]
     Indication: BLOOD CHOLESTEROL INCREASED
     Dosage: 20 MG, 1X/DAY
     Route: 048
     Dates: start: 20110101
  2. METFORMIN [Concomitant]
     Indication: DIABETES MELLITUS
     Dosage: 1000 MG, 2X/DAY
     Route: 048
  3. SITAGLIPTIN PHOSPHATE [Concomitant]
     Indication: DIABETES MELLITUS
     Dosage: 100 MG, 1X/DAY
     Route: 048

REACTIONS (3)
  - MUSCLE SPASMS [None]
  - MYALGIA [None]
  - FATIGUE [None]
